FAERS Safety Report 23162872 (Version 1)
Quarter: 2023Q4

REPORT INFORMATION
  Report Type: Spontaneous
  Country: US (occurrence: None)
  Receive Date: 20231109
  Receipt Date: 20231109
  Transmission Date: 20240109
  Serious: No
  Sender: FDA-Public Use
  Company Number: US-ROCHE-3373548

PATIENT
  Age: 51 Year
  Sex: Female
  Weight: 62.652 kg

DRUGS (6)
  1. COTELLIC [Suspect]
     Active Substance: COBIMETINIB
     Indication: Malignant melanoma of sites other than skin
     Route: 048
     Dates: start: 202212
  2. COTELLIC [Suspect]
     Active Substance: COBIMETINIB
     Indication: Metastatic malignant melanoma
     Route: 048
     Dates: start: 202301
  3. COTELLIC [Suspect]
     Active Substance: COBIMETINIB
     Indication: BRAF gene mutation
  4. ZELBORAF [Suspect]
     Active Substance: VEMURAFENIB
     Indication: Malignant melanoma of sites other than skin
     Route: 048
     Dates: start: 202212
  5. ZELBORAF [Suspect]
     Active Substance: VEMURAFENIB
     Indication: BRAF gene mutation
     Route: 048
     Dates: start: 202301
  6. ZELBORAF [Suspect]
     Active Substance: VEMURAFENIB
     Indication: Metastatic malignant melanoma

REACTIONS (7)
  - Alopecia [Not Recovered/Not Resolved]
  - Rash [Recovered/Resolved]
  - Vitreous floaters [Recovered/Resolved]
  - Fatigue [Not Recovered/Not Resolved]
  - Vision blurred [Not Recovered/Not Resolved]
  - Bone pain [Unknown]
  - Myalgia [Unknown]

NARRATIVE: CASE EVENT DATE: 20221201
